FAERS Safety Report 9750758 (Version 1)
Quarter: 2013Q4

REPORT INFORMATION
  Report Type: Spontaneous
  Country: US (occurrence: US)
  Receive Date: 20131212
  Receipt Date: 20131212
  Transmission Date: 20140711
  Serious: No
  Sender: FDA-Public Use
  Company Number: US-BIOGENIDEC-2013BI095414

PATIENT
  Age: 62 Year
  Sex: Female

DRUGS (5)
  1. TECFIDERA [Suspect]
     Indication: MULTIPLE SCLEROSIS
     Dates: start: 20130809
  2. TECFIDERA [Suspect]
     Indication: MULTIPLE SCLEROSIS
     Route: 048
     Dates: start: 20130813, end: 201308
  3. TECFIDERA [Suspect]
     Indication: MULTIPLE SCLEROSIS
     Route: 048
     Dates: start: 20130820, end: 20130917
  4. AVONEX [Concomitant]
     Indication: MULTIPLE SCLEROSIS
     Route: 030
     Dates: end: 20130809
  5. INSULIN PUMP (NOS) [Concomitant]
     Indication: TYPE 1 DIABETES MELLITUS

REACTIONS (4)
  - Aphagia [Recovered/Resolved]
  - Hypoglycaemia [Recovered/Resolved]
  - Ageusia [Recovered/Resolved]
  - Nausea [Recovered/Resolved]
